FAERS Safety Report 15352421 (Version 1)
Quarter: 2018Q3

REPORT INFORMATION
  Report Type: Spontaneous
  Country: US (occurrence: US)
  Receive Date: 20180829
  Receipt Date: 20180829
  Transmission Date: 20181010
  Serious: Yes (Hospitalization, Other)
  Sender: FDA-Public Use
  Company Number: None

PATIENT
  Age: 51 Year
  Sex: Female
  Weight: 90 kg

DRUGS (1)
  1. PROLIA [Suspect]
     Active Substance: DENOSUMAB
     Indication: OSTEOPOROSIS POSTMENOPAUSAL
     Dosage: ?          OTHER FREQUENCY:EVER 6 MOUTH;?
     Route: 058
     Dates: start: 20180624

REACTIONS (6)
  - Vitamin D decreased [None]
  - Hepatic enzyme increased [None]
  - Injection site pain [None]
  - Cerebrovascular accident [None]
  - Bone pain [None]
  - Blood calcium decreased [None]

NARRATIVE: CASE EVENT DATE: 20180724
